FAERS Safety Report 10414468 (Version 5)
Quarter: 2015Q1

REPORT INFORMATION
  Report Type: Report from Study
  Country: US (occurrence: US)
  Receive Date: 20140828
  Receipt Date: 20150116
  Transmission Date: 20150720
  Serious: Yes (Hospitalization, Other)
  Sender: FDA-Public Use
  Company Number: US-BIOGENIDEC-2014BI085774

PATIENT
  Age: 52 Year
  Sex: Female

DRUGS (4)
  1. AVONEX [Suspect]
     Active Substance: INTERFERON BETA-1A
     Indication: MULTIPLE SCLEROSIS
     Route: 030
     Dates: start: 20131001, end: 20131024
  2. AVONEX [Suspect]
     Active Substance: INTERFERON BETA-1A
     Indication: MULTIPLE SCLEROSIS
     Route: 030
  3. AVONEX [Suspect]
     Active Substance: INTERFERON BETA-1A
     Indication: MULTIPLE SCLEROSIS
     Route: 030
     Dates: start: 201309
  4. AVONEX [Suspect]
     Active Substance: INTERFERON BETA-1A
     Indication: MULTIPLE SCLEROSIS
     Route: 030
     Dates: start: 20131025, end: 20140909

REACTIONS (10)
  - Somnolence [Recovered/Resolved]
  - Inappropriate schedule of drug administration [Recovered/Resolved]
  - Mobility decreased [Unknown]
  - General symptom [Unknown]
  - Migraine [Unknown]
  - Skull fracture [Unknown]
  - Fatigue [Recovered/Resolved]
  - Respiratory arrest [Recovered/Resolved]
  - Arthralgia [Unknown]
  - Skin cancer [Not Recovered/Not Resolved]

NARRATIVE: CASE EVENT DATE: 20131003
